FAERS Safety Report 21893282 (Version 2)
Quarter: 2023Q1

REPORT INFORMATION
  Report Type: Spontaneous
  Country: US (occurrence: US)
  Receive Date: 20230121
  Receipt Date: 20230304
  Transmission Date: 20230417
  Serious: No
  Sender: FDA-Public Use
  Company Number: US-UNITED THERAPEUTICS-UNT-2023-000516

PATIENT
  Age: 68 Year
  Sex: Female
  Weight: 52.608 kg

DRUGS (8)
  1. ORENITRAM [Suspect]
     Active Substance: TREPROSTINIL
     Indication: Pulmonary arterial hypertension
     Dosage: 1 MG, TID
     Route: 048
  2. ORENITRAM [Suspect]
     Active Substance: TREPROSTINIL
     Dosage: 1.625 MG, TID
     Route: 048
  3. ORENITRAM [Suspect]
     Active Substance: TREPROSTINIL
     Dosage: 1.75 MG, TID
     Route: 048
  4. ORENITRAM [Suspect]
     Active Substance: TREPROSTINIL
     Dosage: UNK
     Route: 048
     Dates: start: 20221125
  5. ORENITRAM [Suspect]
     Active Substance: TREPROSTINIL
     Indication: Pulmonary arterial hypertension
     Dosage: UNK
     Route: 048
  6. REVATIO [Concomitant]
     Active Substance: SILDENAFIL CITRATE
     Indication: Product used for unknown indication
     Dosage: UNK
     Route: 065
  7. LETAIRIS [Concomitant]
     Active Substance: AMBRISENTAN
     Indication: Product used for unknown indication
     Dosage: UNK
     Route: 065
  8. AMLODIPINE [Concomitant]
     Active Substance: AMLODIPINE BESYLATE
     Indication: Product used for unknown indication
     Dosage: UNK
     Route: 065

REACTIONS (10)
  - Sciatica [Not Recovered/Not Resolved]
  - Illness [Recovered/Resolved]
  - Pain in jaw [Recovered/Resolved]
  - Suspected COVID-19 [Recovered/Resolved]
  - Osteoporosis [Not Recovered/Not Resolved]
  - Oxygen consumption increased [Not Recovered/Not Resolved]
  - Product dose omission in error [Recovered/Resolved]
  - Tooth abscess [Unknown]
  - Pain in extremity [Unknown]
  - Arthralgia [Unknown]

NARRATIVE: CASE EVENT DATE: 20230201
